FAERS Safety Report 18447987 (Version 1)
Quarter: 2020Q4

REPORT INFORMATION
  Report Type: Spontaneous
  Country: DE (occurrence: AR)
  Receive Date: 20201030
  Receipt Date: 20201030
  Transmission Date: 20210114
  Serious: Yes (Other)
  Sender: FDA-Public Use
  Company Number: DE-TAKEDA-2020TUS045856

PATIENT
  Age: 49 Year
  Sex: Male

DRUGS (3)
  1. ADVATE [Suspect]
     Active Substance: ANTIHEMOPHILIC FACTOR, HUMAN RECOMBINANT
     Indication: PROPHYLAXIS
     Dosage: 18 VIALS OF 1000 PER MONTH/2000 PER APPLICATION, TWICE WEEK, 4000 WEEKLY
     Route: 042
  2. ADVATE [Suspect]
     Active Substance: ANTIHEMOPHILIC FACTOR, HUMAN RECOMBINANT
     Indication: PROPHYLAXIS
     Dosage: 18 VIALS OF 1000 PER MONTH/2000 PER APPLICATION, TWICE WEEK, 4000 WEEKLY
     Route: 042
  3. ADVATE [Suspect]
     Active Substance: ANTIHEMOPHILIC FACTOR, HUMAN RECOMBINANT
     Indication: PROPHYLAXIS
     Dosage: 18 VIALS OF 1000 PER MONTH/2000 PER APPLICATION, TWICE WEEK, 4000 WEEKLY
     Route: 042

REACTIONS (2)
  - Arthralgia [Unknown]
  - Inflammation [Unknown]
